FAERS Safety Report 7364211-8 (Version None)
Quarter: 2011Q1

REPORT INFORMATION
  Report Type: 
  Country: None (occurrence: None)
  Receive Date: 20110316
  Receipt Date: 20110316
  Transmission Date: 20110831
  Serious: Yes (Hospitalization)
  Sender: FDA-Public Use
  Company Number: None

PATIENT
  Sex: Male
  Weight: 56.6996 kg

DRUGS (3)
  1. NAPROXEN [Suspect]
     Indication: CHEST PAIN
     Dosage: TWICE A DAY AM - ONCE PM - ONCE EVERY 12 HRS
     Dates: start: 20100801, end: 20100801
  2. ROBAXIN [Suspect]
     Indication: CHEST PAIN
     Dosage: TWICE A DAY AM - ONCE PM - ONCE EVERY 12 HRS
     Dates: start: 20100801, end: 20100801
  3. DIFLUNISAL [Suspect]
     Indication: CHEST PAIN
     Dosage: TWICE A DAY AM - ONCE PM - ONCE EVERY 12 HRS
     Dates: start: 20100801, end: 20100801

REACTIONS (11)
  - ABDOMINAL PAIN UPPER [None]
  - FAECES DISCOLOURED [None]
  - GASTRIC HAEMORRHAGE [None]
  - ULCER [None]
  - HAEMATOCHEZIA [None]
  - GASTRIC ULCER [None]
  - DRUG HYPERSENSITIVITY [None]
  - DIARRHOEA [None]
  - MALAISE [None]
  - VISION BLURRED [None]
  - ABDOMINAL DISCOMFORT [None]
